FAERS Safety Report 9882899 (Version 2)
Quarter: 2014Q1

REPORT INFORMATION
  Report Type: Other
  Country: US (occurrence: US)
  Receive Date: 20140207
  Receipt Date: 20140207
  Transmission Date: 20141002
  Serious: No
  Sender: FDA-Public Use
  Company Number: US-ACORDA-ACO_38858_2013

PATIENT
  Age: 57 Year
  Sex: Female

DRUGS (9)
  1. AMPYRA [Suspect]
     Dosage: 10 MG, Q 12 HRS
     Route: 048
     Dates: start: 201306, end: 201309
  2. INDERAL [Concomitant]
     Indication: TREMOR
     Dosage: 20 MG, TID
     Route: 065
     Dates: start: 200703
  3. RITALIN [Concomitant]
     Indication: FATIGUE
     Dosage: 20 MG, TID
     Route: 048
  4. COPAXONE [Concomitant]
     Indication: MULTIPLE SCLEROSIS
     Dosage: 20 MG, QD
     Route: 058
  5. BACLOFEN [Concomitant]
     Indication: MUSCLE SPASTICITY
     Dosage: 10 MG, TID
     Route: 048
  6. VESICARE [Concomitant]
     Indication: INCONTINENCE
     Dosage: 10 MG, QD
     Route: 048
     Dates: start: 2006
  7. METFORMIN [Concomitant]
     Indication: DIABETES MELLITUS
     Dosage: 500 MG, TID
     Route: 048
     Dates: start: 2006
  8. ZOCOR [Concomitant]
     Indication: HYPERLIPIDAEMIA
     Dosage: 40 MG, QD
     Route: 048
  9. FOSAMAX [Concomitant]
     Indication: OSTEOPOROSIS
     Dosage: 70 MG, WEEKLY
     Route: 048

REACTIONS (3)
  - Fall [Unknown]
  - Balance disorder [Unknown]
  - Muscular weakness [Unknown]
